FAERS Safety Report 7212269-9 (Version None)
Quarter: 2010Q4

REPORT INFORMATION
  Report Type: 
  Country: None (occurrence: None)
  Receive Date: 20101229
  Receipt Date: 20101215
  Transmission Date: 20110411
  Serious: Yes (Life-Threatening, Hospitalization)
  Sender: FDA-Public Use
  Company Number: GER/UKI/10/0016361

PATIENT
  Age: 75 Year
  Sex: Female

DRUGS (6)
  1. ALENDRONIC ACID (ALENDRONIC ACID) [Suspect]
     Indication: OSTEOPOROSIS PROPHYLAXIS
     Dosage: 70 MG, TOTAL, ORAL
     Route: 048
     Dates: start: 20100714, end: 20100714
  2. ACYCLOVIR [Concomitant]
  3. CALCICHEW (CALCIUM CARBONATE) [Concomitant]
  4. OMEPRAZOLE [Concomitant]
  5. PREDNISOLONE [Concomitant]
  6. SIMVASTATIN [Concomitant]

REACTIONS (1)
  - AUTOIMMUNE THROMBOCYTOPENIA [None]
